FAERS Safety Report 15840791 (Version 1)
Quarter: 2019Q1

REPORT INFORMATION
  Report Type: Report from Study
  Country: US (occurrence: US)
  Receive Date: 20190118
  Receipt Date: 20190118
  Transmission Date: 20190417
  Serious: No
  Sender: FDA-Public Use
  Company Number: US-CELGENEUS-USA-20190102174

PATIENT
  Age: 21 Year
  Sex: Female
  Weight: 96.7 kg

DRUGS (1)
  1. OTEZLA [Suspect]
     Active Substance: APREMILAST
     Indication: PSORIASIS
     Dosage: 90 MILLIGRAM
     Route: 048
     Dates: start: 201711, end: 201801

REACTIONS (5)
  - Psoriasis [Not Recovered/Not Resolved]
  - Product dose omission [Unknown]
  - Therapy non-responder [Unknown]
  - Inappropriate schedule of product administration [Unknown]
  - Frequent bowel movements [Not Recovered/Not Resolved]

NARRATIVE: CASE EVENT DATE: 201712
